FAERS Safety Report 19455938 (Version 4)
Quarter: 2022Q1

REPORT INFORMATION
  Report Type: Report from Study
  Country: AR (occurrence: AR)
  Receive Date: 20210624
  Receipt Date: 20220211
  Transmission Date: 20220423
  Serious: Yes (Death, Other)
  Sender: FDA-Public Use
  Company Number: AR-GILEAD-2021-0537078

PATIENT
  Age: 59 Year
  Sex: Male

DRUGS (24)
  1. REMDESIVIR [Suspect]
     Active Substance: REMDESIVIR
     Indication: COVID-19
     Dosage: UNK, QD
     Route: 042
     Dates: start: 20210525
  2. ABATACEPT [Suspect]
     Active Substance: ABATACEPT
     Indication: COVID-19
     Dosage: UNK UNK, ONCE
     Route: 042
     Dates: start: 20210525
  3. PLACEBO [Suspect]
     Active Substance: UNSPECIFIED INGREDIENT
     Indication: COVID-19
     Dosage: UNK UNK, ONCE
     Route: 042
     Dates: start: 20210525
  4. AMIKACIN [Concomitant]
     Active Substance: AMIKACIN
  5. AMPICILLIN SODIUM\SULBACTAM SODIUM [Concomitant]
     Active Substance: AMPICILLIN SODIUM\SULBACTAM SODIUM
  6. CLARITHROMYCIN [Concomitant]
     Active Substance: CLARITHROMYCIN
  7. CLONAZEPAM [Concomitant]
     Active Substance: CLONAZEPAM
  8. COLISTIN [Concomitant]
     Active Substance: COLISTIN
  9. DEXAMETHASONE [Concomitant]
     Active Substance: DEXAMETHASONE
  10. DIAZEPAM [Concomitant]
     Active Substance: DIAZEPAM
  11. HEPARIN [Concomitant]
     Active Substance: HEPARIN SODIUM
  12. IMIPENEM [Concomitant]
     Active Substance: IMIPENEM
  13. LOSARTAN [Concomitant]
     Active Substance: LOSARTAN
  14. MIDAZOLAM [Concomitant]
     Active Substance: MIDAZOLAM
  15. MORPHINE [Concomitant]
     Active Substance: MORPHINE
  16. NOREPINEPHRINE BITARTRATE [Concomitant]
     Active Substance: NOREPINEPHRINE BITARTRATE
  17. OXYGEN [Concomitant]
     Active Substance: OXYGEN
  18. PANCURONIUM [Concomitant]
     Active Substance: PANCURONIUM
  19. RANITIDINE [Concomitant]
     Active Substance: RANITIDINE
  20. REMIFENTANIL [Concomitant]
     Active Substance: REMIFENTANIL
  21. SODIUM CHLORIDE [Concomitant]
     Active Substance: SODIUM CHLORIDE
  22. VANCOMYCIN [Concomitant]
     Active Substance: VANCOMYCIN
  23. VASOPRESSIN [Concomitant]
     Active Substance: VASOPRESSIN
  24. ASCORBIC ACID;BETACAROTENE;BIOTIN;CALCIUM;CARBOHYDRATES NOS [Concomitant]

REACTIONS (1)
  - Pneumonia [Fatal]

NARRATIVE: CASE EVENT DATE: 20210607
